FAERS Safety Report 14447361 (Version 2)
Quarter: 2018Q1

REPORT INFORMATION
  Report Type: Spontaneous
  Country: US (occurrence: US)
  Receive Date: 20180126
  Receipt Date: 20180226
  Transmission Date: 20180509
  Serious: Yes (Hospitalization, Other)
  Sender: FDA-Public Use
  Company Number: US-SMITH AND NEPHEW, INC-2018SMT00014

PATIENT
  Age: 56 Year
  Sex: Male
  Weight: 79.37 kg

DRUGS (2)
  1. TOPROL XL [Concomitant]
     Active Substance: METOPROLOL SUCCINATE
     Dosage: 100 MG, 1X/DAY
  2. COLLAGENASE SANTYL [Suspect]
     Active Substance: COLLAGENASE CLOSTRIDIUM HISTOLYTICUM
     Indication: ULCER
     Dosage: UNK, EVERY 48 HOURS
     Route: 061
     Dates: start: 2014, end: 2016

REACTIONS (6)
  - Osteomyelitis [Recovered/Resolved]
  - Toe amputation [Recovered/Resolved with Sequelae]
  - Skin graft [Unknown]
  - Wound complication [Not Recovered/Not Resolved]
  - Inappropriate schedule of drug administration [Recovered/Resolved]
  - Drug ineffective [Unknown]

NARRATIVE: CASE EVENT DATE: 2014
